FAERS Safety Report 9817723 (Version 1)
Quarter: 2013Q4

REPORT INFORMATION
  Report Type: Spontaneous
  Country: US (occurrence: None)
  Receive Date: 20131223
  Receipt Date: 20131223
  Transmission Date: 20140711
  Serious: Yes (Other)
  Sender: FDA-Public Use
  Company Number: 218732

PATIENT
  Age: 62 Year
  Sex: Female

DRUGS (2)
  1. PICATO [Suspect]
     Indication: ACTINIC KERATOSIS
     Route: 061
     Dates: start: 20120824, end: 20120825
  2. SYNTHROID (LEVOTHYROXINE SODIUM) [Concomitant]

REACTIONS (4)
  - Application site erythema [None]
  - Blister [None]
  - Scab [None]
  - Incorrect dose administered [None]
